FAERS Safety Report 9912142 (Version 1)
Quarter: 2014Q1

REPORT INFORMATION
  Report Type: Spontaneous
  Country: GB (occurrence: GB)
  Receive Date: 20140220
  Receipt Date: 20140220
  Transmission Date: 20141002
  Serious: Yes (Disabling)
  Sender: FDA-Public Use
  Company Number: GB-BRISTOL-MYERS SQUIBB COMPANY-20145603

PATIENT
  Age: 54 Year
  Sex: Female
  Weight: 102.7 kg

DRUGS (17)
  1. DAPAGLIFLOZIN [Suspect]
     Dates: start: 20140106
  2. CALCIUM [Concomitant]
     Dates: start: 20131003, end: 20131122
  3. FLUOXETINE [Concomitant]
     Dates: start: 20131003
  4. GLICLAZIDE [Concomitant]
     Dates: start: 20131003
  5. LANSOPRAZOLE [Concomitant]
     Dates: start: 20131003
  6. METFORMIN [Concomitant]
     Dates: start: 20131003, end: 20131128
  7. SIMVASTATIN [Concomitant]
     Dates: start: 20131003
  8. GABAPENTIN [Concomitant]
     Dates: start: 20131025
  9. TRAVOPROST [Concomitant]
     Dates: start: 20131025, end: 20131027
  10. IBUPROFEN [Concomitant]
     Dates: start: 20131111, end: 20131121
  11. HYDROXYCHLOROQUINE SULFATE [Concomitant]
     Dates: start: 20131126
  12. PARACETAMOL [Concomitant]
     Dates: start: 20131212, end: 20131224
  13. CLOTRIMAZOLE [Concomitant]
     Dates: start: 20140106
  14. EXENATIDE [Concomitant]
     Dates: start: 20140106
  15. HALOPERIDOL [Concomitant]
     Dates: start: 20140116
  16. HUMULIN [Concomitant]
  17. AMOXICILLIN [Concomitant]

REACTIONS (2)
  - Panic attack [Recovered/Resolved]
  - Anxiety [Recovered/Resolved]
